FAERS Safety Report 15326137 (Version 2)
Quarter: 2018Q3

REPORT INFORMATION
  Report Type: Spontaneous
  Country: BR (occurrence: BR)
  Receive Date: 20180828
  Receipt Date: 20180905
  Transmission Date: 20181010
  Serious: Yes (Other)
  Sender: FDA-Public Use
  Company Number: BR-PFIZER INC-2018342023

PATIENT
  Sex: Female

DRUGS (2)
  1. LORAX [Suspect]
     Active Substance: LORAZEPAM
     Dosage: 1 DF, 1X/DAY
  2. LORAX [Suspect]
     Active Substance: LORAZEPAM
     Dosage: 1 DF, 2X/DAY (1 TABLET IN THE MORNING AND THE OTHER AT NIGHT)

REACTIONS (3)
  - Intentional product misuse [Unknown]
  - Myocardial infarction [Unknown]
  - Apparent death [Unknown]
